FAERS Safety Report 5787790-0 (Version None)
Quarter: 2008Q2

REPORT INFORMATION
  Report Type: 
  Country: None (occurrence: None)
  Receive Date: 20080625
  Receipt Date: 20080618
  Transmission Date: 20081010
  Serious: Yes (Other)
  Sender: FDA-Public Use
  Company Number: PHHY2008JP06975

PATIENT
  Sex: Female
  Weight: 44 kg

DRUGS (4)
  1. ZOMETA [Suspect]
     Indication: METASTASES TO BONE
     Dosage: 4 MG, UNK
     Route: 042
     Dates: start: 20060824
  2. AREDIA [Suspect]
     Dosage: UNK
     Route: 042
     Dates: start: 20050720, end: 20060201
  3. NAVELBINE [Concomitant]
     Indication: BREAST CANCER
     Dosage: 30 MG, UNK
     Route: 042
     Dates: start: 20070510
  4. ARIMIDEX [Concomitant]
     Indication: BREAST CANCER
     Dosage: 1 MG, UNK
     Route: 048
     Dates: start: 20070607

REACTIONS (4)
  - BONE LESION [None]
  - OSTEONECROSIS [None]
  - PAIN IN JAW [None]
  - SWELLING [None]
